FAERS Safety Report 23364437 (Version 1)
Quarter: 2024Q1

REPORT INFORMATION
  Report Type: Report from Study
  Country: US (occurrence: US)
  Receive Date: 20240104
  Receipt Date: 20240104
  Transmission Date: 20240409
  Serious: Yes (Other)
  Sender: FDA-Public Use
  Company Number: US-ABBVIE-5569050

PATIENT
  Age: 79 Year
  Sex: Male

DRUGS (1)
  1. VENCLEXTA [Suspect]
     Active Substance: VENETOCLAX
     Indication: Chronic lymphocytic leukaemia
     Dosage: TAKE 4 TABLET(S) BY MOUTH EVERY DAY?FORM STRENGTH: 100 MILLIGRAM
     Route: 048

REACTIONS (3)
  - Cataract [Unknown]
  - Rash [Unknown]
  - Cataract [Unknown]

NARRATIVE: CASE EVENT DATE: 20231101
